FAERS Safety Report 13077890 (Version 12)
Quarter: 2018Q1

REPORT INFORMATION
  Report Type: Report from Study
  Country: TW (occurrence: TW)
  Receive Date: 20170102
  Receipt Date: 20180126
  Transmission Date: 20180508
  Serious: Yes (Hospitalization)
  Sender: FDA-Public Use
  Company Number: TW-ROCHE-1872444

PATIENT
  Age: 72 Year
  Sex: Male
  Weight: 64.9 kg

DRUGS (53)
  1. SILODOSIN [Concomitant]
     Active Substance: SILODOSIN
     Indication: BENIGN PROSTATIC HYPERPLASIA
     Route: 048
     Dates: start: 20151125
  2. AMLODIPINE [Concomitant]
     Active Substance: AMLODIPINE BESYLATE
     Indication: HYPERTENSION
     Route: 048
     Dates: start: 20151216, end: 20170606
  3. VALPROATE SODIUM. [Concomitant]
     Active Substance: VALPROATE SODIUM
     Indication: BRAIN NEOPLASM
     Route: 048
     Dates: start: 20161227, end: 20161228
  4. VALPROATE SODIUM. [Concomitant]
     Active Substance: VALPROATE SODIUM
     Route: 048
     Dates: start: 20170302, end: 20170302
  5. ULTRACET [Concomitant]
     Active Substance: ACETAMINOPHEN\TRAMADOL HYDROCHLORIDE
     Indication: OROPHARYNGEAL PAIN
     Route: 048
     Dates: start: 20170418, end: 20170502
  6. ACETYLCYSTEINE. [Concomitant]
     Active Substance: ACETYLCYSTEINE
     Indication: SEPSIS
     Route: 048
     Dates: start: 20170417, end: 20170502
  7. TYROTHRICIN [Concomitant]
     Active Substance: TYROTHRICIN
     Route: 061
     Dates: start: 20170424, end: 20170502
  8. CIPROFLOXACIN HCL [Concomitant]
     Active Substance: CIPROFLOXACIN HYDROCHLORIDE
     Indication: SEPSIS
     Route: 048
     Dates: start: 20170417, end: 20170423
  9. DUTASTERIDE. [Concomitant]
     Active Substance: DUTASTERIDE
     Indication: BENIGN PROSTATIC HYPERPLASIA
     Dosage: BENIGN PROSTATIC HYPERPLASIA
     Route: 048
     Dates: start: 20170304, end: 20170606
  10. SILODOSIN [Concomitant]
     Active Substance: SILODOSIN
     Route: 065
     Dates: start: 20170420, end: 20170606
  11. VALPROATE SODIUM. [Concomitant]
     Active Substance: VALPROATE SODIUM
     Route: 048
     Dates: start: 20170303, end: 20170310
  12. CODEINE PHOSPHATE [Concomitant]
     Active Substance: CODEINE PHOSPHATE
     Indication: PAIN
     Route: 042
     Dates: start: 20161227, end: 20161229
  13. CODEINE PHOSPHATE [Concomitant]
     Active Substance: CODEINE PHOSPHATE
     Dosage: POST OPERATION PAIN CONTROL
     Route: 030
     Dates: start: 20170302, end: 20170305
  14. FLUOROMETHOLONE. [Concomitant]
     Active Substance: FLUOROMETHOLONE
     Indication: CONJUNCTIVITIS
     Route: 047
     Dates: start: 20170419, end: 20170502
  15. BETHANECHOL CHLORIDE. [Concomitant]
     Active Substance: BETHANECHOL CHLORIDE
     Indication: URINARY RETENTION
     Route: 065
     Dates: start: 20170420, end: 20170502
  16. DUTASTERIDE. [Concomitant]
     Active Substance: DUTASTERIDE
     Indication: BENIGN PROSTATIC HYPERPLASIA
     Route: 048
     Dates: start: 20151125
  17. OXYBUTYNIN. [Concomitant]
     Active Substance: OXYBUTYNIN CHLORIDE
     Indication: BENIGN PROSTATIC HYPERPLASIA
     Dosage: REPORTED AS: OXYBUTYNIN ER
     Route: 048
     Dates: start: 20160309
  18. VALPROATE SODIUM. [Concomitant]
     Active Substance: VALPROATE SODIUM
     Dosage: REDUCTION OF RAISED INTRACRANIAL PRESSURE
     Route: 042
     Dates: start: 20170302, end: 20170303
  19. CLONAZEPAM. [Concomitant]
     Active Substance: CLONAZEPAM
     Indication: ANXIETY
     Route: 048
     Dates: start: 20170206, end: 20170305
  20. ESOMEPRAZOLE [Concomitant]
     Active Substance: ESOMEPRAZOLE
     Dosage: STRESSFUL GASTRIC ULCER
     Route: 048
     Dates: start: 20170303, end: 20170305
  21. NICARDIPINE HCL [Concomitant]
     Active Substance: NICARDIPINE HYDROCHLORIDE
     Indication: HYPERTENSION
     Route: 030
     Dates: start: 20170302, end: 20170310
  22. AMLODIPINE [Concomitant]
     Active Substance: AMLODIPINE BESYLATE
     Route: 048
     Dates: start: 20170304
  23. CEFAZOLIN SODIUM. [Concomitant]
     Active Substance: CEFAZOLIN SODIUM
     Route: 042
     Dates: start: 20170302, end: 20170305
  24. BENZYDAMINE HCL [Concomitant]
     Indication: MOUTH ULCERATION
     Route: 061
     Dates: start: 20170419, end: 20170420
  25. BISOPROLOL [Concomitant]
     Active Substance: BISOPROLOL
     Indication: HYPERTENSION
     Route: 048
     Dates: start: 20160308
  26. ACETAMINOPHEN. [Concomitant]
     Active Substance: ACETAMINOPHEN
     Indication: PAIN
     Route: 048
     Dates: start: 20161227, end: 20170105
  27. D-MANNITOL [Concomitant]
     Active Substance: MANNITOL
     Route: 042
     Dates: start: 20161226, end: 20161228
  28. MAGNESIUM OXIDE. [Concomitant]
     Active Substance: MAGNESIUM OXIDE
     Indication: CONSTIPATION
     Route: 048
     Dates: start: 20161227, end: 20170105
  29. EPINEPHRINE. [Concomitant]
     Active Substance: EPINEPHRINE
     Route: 042
     Dates: start: 20170302, end: 20170302
  30. ESOMEPRAZOLE [Concomitant]
     Active Substance: ESOMEPRAZOLE
     Indication: GASTRIC ULCER
     Route: 042
     Dates: start: 20170302, end: 20170303
  31. DEXAMETHASONE. [Concomitant]
     Active Substance: DEXAMETHASONE
     Route: 061
     Dates: start: 20170419, end: 20170510
  32. TIENAM [Concomitant]
     Active Substance: CILASTATIN SODIUM\IMIPENEM
     Indication: SEPSIS
     Route: 042
     Dates: start: 20170417, end: 20170430
  33. CEFTRIAXONE. [Concomitant]
     Active Substance: CEFTRIAXONE
     Indication: SEPSIS
     Route: 042
     Dates: start: 20170417, end: 20170421
  34. ATEZOLIZUMAB. [Suspect]
     Active Substance: ATEZOLIZUMAB
     Indication: RENAL CELL CARCINOMA
     Dosage: MOST RECENT DOSE: 07/DEC/2016 AT 1200 MG, 08/FEB/2017?STARTING DOSE AS PER PROTOCOL?MOST RECENT DOSE
     Route: 042
     Dates: start: 20151106
  35. BEVACIZUMAB. [Suspect]
     Active Substance: BEVACIZUMAB
     Indication: RENAL CELL CARCINOMA
     Dosage: MOST RECENT DOSE: 11/MAY/2016 AT 985.5 MG?STARTING DOSE AS PER PROTOCOL?MOST RECENT DOSE OF BEVACIZU
     Route: 042
     Dates: start: 20151106
  36. PROPYLTHIOURACIL. [Concomitant]
     Active Substance: PROPYLTHIOURACIL
     Indication: HYPERTHYROIDISM
     Route: 048
     Dates: start: 20160308
  37. ACETAMINOPHEN. [Concomitant]
     Active Substance: ACETAMINOPHEN
     Indication: SEPSIS
     Route: 048
     Dates: start: 20170302, end: 20170310
  38. PANTOPRAZOLE [Concomitant]
     Active Substance: PANTOPRAZOLE
     Indication: GASTRIC ULCER
     Route: 042
     Dates: start: 20161227, end: 20161228
  39. INDOCYANINE GREEN. [Concomitant]
     Active Substance: INDOCYANINE GREEN
     Route: 042
     Dates: start: 20170302, end: 20170302
  40. DEXAMETHASONE. [Concomitant]
     Active Substance: DEXAMETHASONE
     Indication: MOUTH ULCERATION
     Route: 048
  41. VALPROATE SODIUM. [Concomitant]
     Active Substance: VALPROATE SODIUM
     Indication: EPILEPSY
     Route: 048
     Dates: start: 20161229, end: 20170205
  42. CEFAZOLIN SODIUM. [Concomitant]
     Active Substance: CEFAZOLIN SODIUM
     Route: 042
     Dates: start: 20161226, end: 20161228
  43. METOCLOPRAMIDE. [Concomitant]
     Active Substance: METOCLOPRAMIDE
     Indication: ABDOMINAL PAIN UPPER
     Route: 048
     Dates: start: 20170106, end: 20170119
  44. ULTRACET [Concomitant]
     Active Substance: ACETAMINOPHEN\TRAMADOL HYDROCHLORIDE
     Indication: PAIN
  45. NEOMYCIN. [Concomitant]
     Active Substance: NEOMYCIN
     Route: 061
     Dates: start: 20170424, end: 20170502
  46. ALPRAZOLAM. [Concomitant]
     Active Substance: ALPRAZOLAM
     Indication: INSOMNIA
     Route: 048
     Dates: start: 20151125
  47. ALPRAZOLAM. [Concomitant]
     Active Substance: ALPRAZOLAM
     Route: 048
     Dates: start: 20170421, end: 20170502
  48. SILODOSIN [Concomitant]
     Active Substance: SILODOSIN
     Indication: URINARY RETENTION
     Dosage: BENIGN PROSTATE HYPERTROPHY
     Route: 048
     Dates: start: 20170304
  49. VALPROATE SODIUM. [Concomitant]
     Active Substance: VALPROATE SODIUM
     Route: 048
     Dates: start: 20170418, end: 20170511
  50. ACETAMINOPHEN. [Concomitant]
     Active Substance: ACETAMINOPHEN
     Route: 048
     Dates: start: 20170417, end: 20170608
  51. D-MANNITOL [Concomitant]
     Active Substance: MANNITOL
     Dosage: REDUCTION OF RAISED INTRACRANIAL PRESSURE
     Route: 042
     Dates: start: 20170302, end: 20170302
  52. FEXOFENADINE [Concomitant]
     Active Substance: FEXOFENADINE\FEXOFENADINE HYDROCHLORIDE
     Indication: SEPSIS
     Route: 048
     Dates: start: 20170407, end: 20170430
  53. SENNOSIDE A+B [Concomitant]
     Active Substance: SENNOSIDES A AND B
     Indication: CONSTIPATION
     Dosage: REPORTED AS SENNOSIDE A+B CALCIUM
     Route: 048
     Dates: start: 20170419, end: 20170422

REACTIONS (1)
  - Gliosis [Recovered/Resolved]

NARRATIVE: CASE EVENT DATE: 20161227
